FAERS Safety Report 13772672 (Version 1)
Quarter: 2017Q3

REPORT INFORMATION
  Report Type: Spontaneous
  Country: US (occurrence: US)
  Receive Date: 20170720
  Receipt Date: 20170720
  Transmission Date: 20171127
  Serious: No
  Sender: FDA-Public Use
  Company Number: US-PERRIGO-16US017695

PATIENT
  Age: 54 Year
  Sex: Female
  Weight: 61.22 kg

DRUGS (2)
  1. MICONAZOLE 1 [Suspect]
     Active Substance: MICONAZOLE NITRATE
     Indication: VULVOVAGINAL MYCOTIC INFECTION
     Dosage: 1200 MG, SINGLE
     Route: 067
     Dates: start: 20160627, end: 20160627
  2. MICONAZOLE 1 [Suspect]
     Active Substance: MICONAZOLE NITRATE
     Indication: VULVOVAGINAL MYCOTIC INFECTION
     Dosage: SMALL AMOUNT, 5 TIMES DAILY
     Route: 061
     Dates: start: 20160627, end: 20160628

REACTIONS (2)
  - Inappropriate schedule of drug administration [Recovered/Resolved]
  - Drug ineffective [Unknown]

NARRATIVE: CASE EVENT DATE: 20160627
